FAERS Safety Report 21915918 (Version 1)
Quarter: 2023Q1

REPORT INFORMATION
  Report Type: Spontaneous
  Country: US (occurrence: None)
  Receive Date: 20230125
  Receipt Date: 20230125
  Transmission Date: 20230417
  Serious: Yes (Life-Threatening, Hospitalization, Disabling, Other)
  Sender: FDA-Public Use
  Company Number: None

PATIENT
  Age: 31 Year
  Sex: Male

DRUGS (5)
  1. CLOZAPINE [Suspect]
     Active Substance: CLOZAPINE
     Indication: Drug therapy
     Dosage: FREQUENCY : TWICE A DAY;?
     Route: 048
  2. VITAMIN C [Concomitant]
     Active Substance: ASCORBIC ACID
  3. CALCIUM [Concomitant]
     Active Substance: CALCIUM
  4. VITAMINS [Concomitant]
     Active Substance: VITAMINS
  5. acetomenophin [Concomitant]

REACTIONS (6)
  - Tardive dyskinesia [None]
  - Akathisia [None]
  - Gynaecomastia [None]
  - Constipation [None]
  - Bone density decreased [None]
  - Crime [None]

NARRATIVE: CASE EVENT DATE: 20151125
